FAERS Safety Report 6428208-4 (Version None)
Quarter: 2009Q4

REPORT INFORMATION
  Report Type: 
  Country: None (occurrence: None)
  Receive Date: 20091030
  Receipt Date: 20091022
  Transmission Date: 20100525
  Serious: Yes (Other)
  Sender: FDA-Public Use
  Company Number: GXKR2008GB09077

PATIENT
  Age: 16 Year
  Sex: Male

DRUGS (7)
  1. FLUOXETINE [Suspect]
     Indication: OBSESSIVE-COMPULSIVE DISORDER
     Dosage: 40 MG, ORAL, 60 MG, ORAL
     Route: 048
     Dates: start: 19980101, end: 20090101
  2. FLUOXETINE [Suspect]
     Indication: TOURETTE'S DISORDER
     Dosage: 40 MG, ORAL, 60 MG, ORAL
     Route: 048
     Dates: start: 19980101, end: 20090101
  3. FLUOXETINE [Suspect]
     Indication: OBSESSIVE-COMPULSIVE DISORDER
     Dosage: 40 MG, ORAL, 60 MG, ORAL
     Route: 048
     Dates: start: 20090101
  4. FLUOXETINE [Suspect]
     Indication: TOURETTE'S DISORDER
     Dosage: 40 MG, ORAL, 60 MG, ORAL
     Route: 048
     Dates: start: 20090101
  5. PROVIGIL [Suspect]
     Indication: NARCOLEPSY
     Dosage: 200 MG, QD, ORAL, 400 MG, QD, ORAL
     Route: 048
     Dates: start: 20080501
  6. PROVIGIL [Suspect]
     Indication: SOMNOLENCE
     Dosage: 200 MG, QD, ORAL, 400 MG, QD, ORAL
     Route: 048
     Dates: start: 20080501
  7. RISPERIDONE [Concomitant]

REACTIONS (4)
  - CONDITION AGGRAVATED [None]
  - INHIBITORY DRUG INTERACTION [None]
  - OBSESSIVE-COMPULSIVE DISORDER [None]
  - TOURETTE'S DISORDER [None]
